FAERS Safety Report 8591033-2 (Version None)
Quarter: 2012Q3

REPORT INFORMATION
  Report Type: 
  Country: None (occurrence: None)
  Receive Date: 20120813
  Receipt Date: 20120802
  Transmission Date: 20120928
  Serious: Yes (Other)
  Sender: FDA-Public Use
  Company Number: US-CELGENEUS-163-21880-12071329

PATIENT
  Sex: Male

DRUGS (12)
  1. FLUTICASONE PROPIONATE [Concomitant]
     Route: 065
  2. PREDNISONE TAB [Concomitant]
     Dosage: 10 MILLIGRAM
     Route: 048
  3. VENTOLIN [Concomitant]
     Route: 048
  4. REVLIMID [Suspect]
     Dosage: 10 MILLIGRAM
     Route: 048
     Dates: start: 20101001, end: 20100101
  5. REVLIMID [Suspect]
     Dosage: 5 MILLIGRAM
     Route: 048
     Dates: start: 20120705, end: 20120711
  6. SPIRIVA [Concomitant]
     Route: 065
  7. PREVACID [Concomitant]
     Dosage: 30 MILLIGRAM
     Route: 048
     Dates: start: 20120508
  8. COUMADIN [Concomitant]
     Indication: ARRHYTHMIA
     Dosage: 2.5 MILLIGRAM
     Route: 048
  9. FOLIC ACID [Concomitant]
     Dosage: 800 MICROGRAM
     Route: 048
  10. COLCHICINE [Concomitant]
     Indication: GOUT
     Dosage: .6 MILLIGRAM
     Route: 048
  11. REVLIMID [Suspect]
     Dosage: 10-5MG
     Route: 048
     Dates: start: 20120201
  12. LIPITOR [Concomitant]
     Dosage: 10 MILLIGRAM
     Route: 048
     Dates: start: 20120508

REACTIONS (5)
  - LIVER FUNCTION TEST ABNORMAL [None]
  - ARRHYTHMIA [None]
  - GOUT [None]
  - CLOSTRIDIAL INFECTION [None]
  - HYPERBILIRUBINAEMIA [None]
